FAERS Safety Report 21228405 (Version 3)
Quarter: 2023Q1

REPORT INFORMATION
  Report Type: Spontaneous
  Country: NZ (occurrence: NZ)
  Receive Date: 20220818
  Receipt Date: 20230119
  Transmission Date: 20230417
  Serious: Yes (Death, Hospitalization, Other)
  Sender: FDA-Public Use
  Company Number: NZ-MYLANLABS-2022M1087053

PATIENT
  Age: 61 Year
  Sex: Male

DRUGS (4)
  1. CLOZARIL [Suspect]
     Active Substance: CLOZAPINE
     Indication: Schizophrenia
     Dosage: UNK
     Route: 065
     Dates: start: 1990, end: 202207
  2. CLOZARIL [Suspect]
     Active Substance: CLOZAPINE
     Dosage: 450 MILLIGRAM, HS (NOCTE)
     Route: 048
     Dates: start: 1997, end: 20220725
  3. CLOZARIL [Suspect]
     Active Substance: CLOZAPINE
     Dosage: UNK
     Route: 048
     Dates: start: 20100924, end: 20220725
  4. HALOPERIDOL [Concomitant]
     Active Substance: HALOPERIDOL
     Dosage: 50 MILLIGRAM, Q2W (IMI FORTNIGHTLY)
     Route: 030
     Dates: start: 20180509, end: 20220920

REACTIONS (1)
  - Gastrointestinal carcinoma [Fatal]

NARRATIVE: CASE EVENT DATE: 20220629
